FAERS Safety Report 8920668 (Version 2)
Quarter: 2013Q1

REPORT INFORMATION
  Report Type: Report from Study
  Country: US (occurrence: US)
  Receive Date: 20121121
  Receipt Date: 20130108
  Transmission Date: 20140127
  Serious: Yes (Other)
  Sender: FDA-Public Use
  Company Number: US-ABBOTT-12P-163-1009540-00

PATIENT
  Sex: Male
  Weight: 158.9 kg

DRUGS (7)
  1. HUMIRA [Suspect]
     Indication: RHEUMATOID ARTHRITIS
     Dates: start: 2011
  2. CYMBALTA [Concomitant]
     Indication: DEPRESSION
  3. PROTONIX [Concomitant]
     Indication: GASTROOESOPHAGEAL REFLUX DISEASE
  4. LISINOPRIL HCTZ [Concomitant]
     Indication: HYPERTENSION
  5. SUVOXONE [Concomitant]
     Indication: PAIN
  6. REMERON [Concomitant]
     Indication: INSOMNIA
  7. KLONOPIN [Concomitant]
     Indication: ANXIETY

REACTIONS (6)
  - Carpal tunnel syndrome [Recovered/Resolved]
  - Tendonitis [Unknown]
  - Joint injury [Unknown]
  - Open fracture [Recovered/Resolved]
  - Local swelling [Recovered/Resolved]
  - Injury [Unknown]
